FAERS Safety Report 23903130 (Version 1)
Quarter: 2024Q2

REPORT INFORMATION
  Report Type: Spontaneous
  Country: FR (occurrence: FR)
  Receive Date: 20240527
  Receipt Date: 20240527
  Transmission Date: 20240716
  Serious: Yes (Hospitalization, Other)
  Sender: FDA-Public Use
  Company Number: FR-AFSSAPS-DJ2024000657

PATIENT
  Age: 76 Year
  Sex: Female
  Weight: 82.5 kg

DRUGS (1)
  1. METRONIDAZOLE [Suspect]
     Active Substance: METRONIDAZOLE
     Indication: Infection parasitic
     Dosage: 750 MILLIGRAM, ONCE A DAY (3 X 250)
     Route: 048
     Dates: start: 20240309, end: 20240312

REACTIONS (2)
  - Loss of consciousness [Recovered/Resolved]
  - Malaise [Recovered/Resolved]

NARRATIVE: CASE EVENT DATE: 20240312
